FAERS Safety Report 10379182 (Version 1)
Quarter: 2014Q3

REPORT INFORMATION
  Report Type: Spontaneous
  Country: US (occurrence: None)
  Receive Date: 20140811
  Receipt Date: 20140811
  Transmission Date: 20150326
  Serious: Yes (Other)
  Sender: FDA-Public Use
  Company Number: None

PATIENT
  Age: 57 Year
  Sex: Female
  Weight: 102.51 kg

DRUGS (1)
  1. CLONAZEPAM. [Suspect]
     Active Substance: CLONAZEPAM
     Indication: ANXIETY
     Route: 048
     Dates: start: 20140307, end: 20140517

REACTIONS (14)
  - Product substitution issue [None]
  - Product quality issue [None]
  - Fatigue [None]
  - Anxiety [None]
  - Arthritis infective [None]
  - Blood pressure decreased [None]
  - Arthralgia [None]
  - Rash erythematous [None]
  - Lip swelling [None]
  - Abasia [None]
  - Rash [None]
  - Joint swelling [None]
  - Pyrexia [None]
  - Insomnia [None]

NARRATIVE: CASE EVENT DATE: 20140517
